FAERS Safety Report 10215635 (Version 1)
Quarter: 2014Q2

REPORT INFORMATION
  Report Type: Spontaneous
  Country: US (occurrence: None)
  Receive Date: 20140602
  Receipt Date: 20140602
  Transmission Date: 20141212
  Serious: No
  Sender: FDA-Public Use
  Company Number: None

PATIENT
  Sex: Male
  Weight: 42.2 kg

DRUGS (1)
  1. DEXMETHYLPHENIDATE (GNERIC FOR FOCALIN XR) [Suspect]
     Indication: ATTENTION DEFICIT/HYPERACTIVITY DISORDER
     Route: 048
     Dates: start: 201306, end: 201312

REACTIONS (5)
  - Attention deficit/hyperactivity disorder [None]
  - Condition aggravated [None]
  - Product substitution issue [None]
  - Movement disorder [None]
  - Speech disorder [None]
